FAERS Safety Report 7597192-2 (Version None)
Quarter: 2011Q3

REPORT INFORMATION
  Report Type: 
  Country: None (occurrence: None)
  Receive Date: 20110708
  Receipt Date: 20100812
  Transmission Date: 20111222
  Serious: No
  Sender: FDA-Public Use
  Company Number: US-GLAXOSMITHKLINE-A0875562A

PATIENT
  Age: 58 Year
  Sex: Female
  Weight: 90.9 kg

DRUGS (4)
  1. DIOVAN HCT [Concomitant]
  2. ALBUTEROL SULFATE AUTOHALER [Concomitant]
  3. PREMARIN [Concomitant]
  4. FLOVENT [Suspect]
     Indication: ASTHMA
     Dosage: 1PUFF TWICE PER DAY
     Route: 055
     Dates: start: 20100810, end: 20100811

REACTIONS (6)
  - PRURITUS [None]
  - BURNING SENSATION [None]
  - PRODUCT QUALITY ISSUE [None]
  - ILL-DEFINED DISORDER [None]
  - RASH [None]
  - ERYTHEMA [None]
